FAERS Safety Report 20152915 (Version 1)
Quarter: 2021Q4

REPORT INFORMATION
  Report Type: Spontaneous
  Country: US (occurrence: None)
  Receive Date: 20211206
  Receipt Date: 20211206
  Transmission Date: 20220303
  Serious: Yes (Death)
  Sender: FDA-Public Use
  Company Number: None

PATIENT
  Sex: Male

DRUGS (2)
  1. IMATINIB [Suspect]
     Active Substance: IMATINIB
     Indication: Anal cancer
     Dosage: FREQUENCY : DAILY;?
     Route: 048
     Dates: start: 20210729
  2. IMATINIB [Suspect]
     Active Substance: IMATINIB
     Dosage: FREQUENCY : DAILY;?
     Route: 048

REACTIONS (1)
  - Death [None]
